FAERS Safety Report 9866126 (Version 1)
Quarter: 2014Q1

REPORT INFORMATION
  Report Type: Spontaneous
  Country: US (occurrence: US)
  Receive Date: 20140203
  Receipt Date: 20140203
  Transmission Date: 20141002
  Serious: No
  Sender: FDA-Public Use
  Company Number: US-ALLERGAN-1317556US

PATIENT
  Age: 84 Year
  Sex: Female

DRUGS (4)
  1. RESTASIS [Suspect]
     Indication: DRY EYE
     Dosage: 2 GTT, BID
     Route: 047
     Dates: start: 20131105, end: 20131106
  2. LUMIGAN [Concomitant]
     Indication: GLAUCOMA
  3. TIMOLOL [Concomitant]
     Indication: GLAUCOMA
  4. PREDNISOLONE [Concomitant]
     Indication: PRODUCT USED FOR UNKNOWN INDICATION
     Dosage: UNK UNK, QOD

REACTIONS (4)
  - Swelling face [Recovering/Resolving]
  - Hypoaesthesia [Recovering/Resolving]
  - Eye swelling [Recovering/Resolving]
  - Eye swelling [Not Recovered/Not Resolved]
